FAERS Safety Report 4370243-4 (Version None)
Quarter: 2004Q2

REPORT INFORMATION
  Report Type: 
  Country: None (occurrence: None)
  Receive Date: 20040603
  Receipt Date: 20040325
  Transmission Date: 20050107
  Serious: No
  Sender: FDA-Public Use
  Company Number: US-BRISTOL-MYERS SQUIBB COMPANY-12542429

PATIENT
  Age: 43 Year
  Sex: Female
  Weight: 86 kg

DRUGS (9)
  1. ABILIFY [Suspect]
     Indication: BIPOLAR DISORDER
     Dosage: DOSE INCREASED TO 7.5 MG DAILY ON 29-MAR-04.
     Route: 048
     Dates: start: 20040315
  2. ABILIFY [Suspect]
     Indication: MANIA
     Dosage: DOSE INCREASED TO 7.5 MG DAILY ON 29-MAR-04.
     Route: 048
     Dates: start: 20040315
  3. EFFEXOR XR [Concomitant]
  4. NEURONTIN [Concomitant]
  5. KLONOPIN [Concomitant]
  6. REMERON [Concomitant]
  7. TOPAMAX [Concomitant]
  8. CORGARD [Concomitant]
  9. EXTRA STRENGTH TYLENOL [Concomitant]

REACTIONS (10)
  - ANXIETY [None]
  - DEPRESSED MOOD [None]
  - DIARRHOEA [None]
  - EAR PAIN [None]
  - FLUSHING [None]
  - MYALGIA [None]
  - PAIN [None]
  - PYREXIA [None]
  - RHEUMATOID ARTHRITIS [None]
  - SUICIDAL IDEATION [None]
